FAERS Safety Report 6064197-2 (Version None)
Quarter: 2009Q1

REPORT INFORMATION
  Report Type: 
  Country: None (occurrence: None)
  Receive Date: 20090204
  Receipt Date: 20090126
  Transmission Date: 20090719
  Serious: Yes (Other)
  Sender: FDA-Public Use
  Company Number: NO-ASTRAZENECA-2009SE00587

PATIENT
  Sex: Female

DRUGS (5)
  1. SEROQUEL [Suspect]
     Indication: DEPRESSION
     Route: 048
  2. WELLBUTRIN [Suspect]
     Indication: DEPRESSION
     Route: 048
     Dates: end: 20081017
  3. WELLBUTRIN [Suspect]
     Route: 048
     Dates: start: 20081017, end: 20081022
  4. DIAZEPAM [Suspect]
     Indication: ANXIETY
  5. ZOLPIDEM TARTRATE [Suspect]
     Indication: INSOMNIA
     Route: 065

REACTIONS (2)
  - AGGRESSION [None]
  - EMOTIONAL DISORDER [None]
